FAERS Safety Report 5606591-7 (Version None)
Quarter: 2008Q1

REPORT INFORMATION
  Report Type: 
  Country: None (occurrence: None)
  Receive Date: 20080129
  Receipt Date: 20080124
  Transmission Date: 20080703
  Serious: Yes (Other)
  Sender: FDA-Public Use
  Company Number: US-ASTRAZENECA-2007UW25845

PATIENT
  Age: 16544 Day
  Sex: Female

DRUGS (2)
  1. SEROQUEL [Suspect]
     Indication: SCHIZOAFFECTIVE DISORDER
     Route: 048
  2. KLONOPIN [Concomitant]
     Indication: ANXIETY

REACTIONS (2)
  - HYPERSENSITIVITY [None]
  - PHARYNGEAL OEDEMA [None]
